FAERS Safety Report 8060631-7 (Version None)
Quarter: 2012Q1

REPORT INFORMATION
  Report Type: 
  Country: None (occurrence: None)
  Receive Date: 20120119
  Receipt Date: 20120119
  Transmission Date: 20120608
  Serious: No
  Sender: FDA-Public Use
  Company Number: None

PATIENT
  Sex: Male
  Weight: 68.9467 kg

DRUGS (1)
  1. ACTOS [Suspect]
     Indication: DIABETES MELLITUS
     Dosage: 1 TABLET DAILY
     Dates: start: 20111030, end: 20111125

REACTIONS (6)
  - ABDOMINAL DISTENSION [None]
  - JOINT SWELLING [None]
  - WEIGHT INCREASED [None]
  - ASTHENIA [None]
  - OEDEMA PERIPHERAL [None]
  - DYSPNOEA [None]
